FAERS Safety Report 21571147 (Version 1)
Quarter: 2022Q4

REPORT INFORMATION
  Report Type: Spontaneous
  Country: US (occurrence: None)
  Receive Date: 20221108
  Receipt Date: 20221108
  Transmission Date: 20230112
  Serious: Yes (Other)
  Sender: FDA-Public Use
  Company Number: None

PATIENT
  Age: 40 Year
  Sex: Female
  Weight: 87.5 kg

DRUGS (1)
  1. PACLITAXEL [Suspect]
     Active Substance: PACLITAXEL
     Indication: Endometrial cancer
     Dosage: OTHER FREQUENCY : EVERY 3 WEEKS;?
     Route: 042
     Dates: start: 20221012

REACTIONS (4)
  - Chest discomfort [None]
  - Pruritus [None]
  - Palmar erythema [None]
  - Infusion related reaction [None]

NARRATIVE: CASE EVENT DATE: 20221102
